FAERS Safety Report 20254023 (Version 4)
Quarter: 2022Q1

REPORT INFORMATION
  Report Type: Spontaneous
  Country: PT (occurrence: PT)
  Receive Date: 20211230
  Receipt Date: 20220201
  Transmission Date: 20220423
  Serious: Yes (Other)
  Sender: FDA-Public Use
  Company Number: PT-ROCHE-2964348

PATIENT
  Age: 61 Year
  Sex: Female

DRUGS (6)
  1. TEMOZOLOMIDE [Suspect]
     Active Substance: TEMOZOLOMIDE
     Indication: Metastases to liver
     Dosage: UNK
     Route: 065
  2. TEMOZOLOMIDE [Suspect]
     Active Substance: TEMOZOLOMIDE
     Indication: Neuroendocrine carcinoma
  3. CAPECITABINE [Suspect]
     Active Substance: CAPECITABINE
     Indication: Metastases to liver
     Dosage: UNK
     Route: 048
  4. CAPECITABINE [Suspect]
     Active Substance: CAPECITABINE
     Indication: Neuroendocrine carcinoma
  5. TINZAPARIN [Suspect]
     Active Substance: TINZAPARIN
     Indication: Neuroendocrine carcinoma
     Dosage: UNK
     Route: 065
  6. TINZAPARIN [Suspect]
     Active Substance: TINZAPARIN
     Indication: Metastases to liver

REACTIONS (2)
  - Disseminated intravascular coagulation [Unknown]
  - Product use in unapproved indication [Unknown]
